FAERS Safety Report 6693178-0 (Version None)
Quarter: 2010Q2

REPORT INFORMATION
  Report Type: 
  Country: None (occurrence: None)
  Receive Date: 20100422
  Receipt Date: 20100413
  Transmission Date: 20101027
  Serious: Yes (Other)
  Sender: FDA-Public Use
  Company Number: TR-ELI_LILLY_AND_COMPANY-TR201004003815

PATIENT

DRUGS (3)
  1. HUMULIN R [Suspect]
     Indication: DIABETES MELLITUS
     Dosage: 4 IU, DAILY (1/D)
     Route: 064
     Dates: start: 20100104, end: 20100106
  2. HUMULIN R [Suspect]
     Dosage: 4 IU, OTHER
     Route: 064
     Dates: start: 20100104, end: 20100106
  3. HUMULIN R [Suspect]
     Dosage: 4 IU, EACH EVENING
     Route: 064
     Dates: start: 20100104, end: 20100106

REACTIONS (4)
  - ABORTION [None]
  - DRUG EXPOSURE DURING PREGNANCY [None]
  - FOETAL GROWTH RETARDATION [None]
  - MATERNAL DRUGS AFFECTING FOETUS [None]
